FAERS Safety Report 12351763 (Version 1)
Quarter: 2016Q2

REPORT INFORMATION
  Report Type: Spontaneous
  Country: FR (occurrence: FR)
  Receive Date: 20160510
  Receipt Date: 20160510
  Transmission Date: 20160815
  Serious: No
  Sender: FDA-Public Use
  Company Number: FR-PHOTOCURE ASA-HX-PM-FR-160400001

PATIENT
  Age: 75 Year
  Sex: Male
  Weight: 115 kg

DRUGS (1)
  1. CYSVIEW [Suspect]
     Active Substance: HEXAMINOLEVULINATE HYDROCHLORIDE
     Indication: BLADDER CANCER
     Dosage: UNSPECIFIED
     Route: 043
     Dates: start: 20150812, end: 20150812

REACTIONS (1)
  - Drug administration error [None]

NARRATIVE: CASE EVENT DATE: 20150812
